FAERS Safety Report 7348262-5 (Version None)
Quarter: 2011Q1

REPORT INFORMATION
  Report Type: 
  Country: None (occurrence: None)
  Receive Date: 20110311
  Receipt Date: 20110308
  Transmission Date: 20110831
  Serious: Yes (Other)
  Sender: FDA-Public Use
  Company Number: US-PFIZER INC-2011051982

PATIENT
  Age: 35 Year
  Sex: Female

DRUGS (1)
  1. LYRICA [Suspect]
     Dosage: UNK
     Dates: start: 20110101

REACTIONS (4)
  - TONGUE BLISTERING [None]
  - DIZZINESS [None]
  - SWOLLEN TONGUE [None]
  - OEDEMA PERIPHERAL [None]
